FAERS Safety Report 5639834-4 (Version None)
Quarter: 2008Q1

REPORT INFORMATION
  Report Type: 
  Country: None (occurrence: None)
  Receive Date: 20080226
  Receipt Date: 20080226
  Transmission Date: 20080703
  Serious: Yes (Life-Threatening, Hospitalization)
  Sender: FDA-Public Use
  Company Number: None

PATIENT
  Age: 56 Year
  Sex: Male

DRUGS (2)
  1. LAMICTAL [Suspect]
     Indication: EPILEPSY
     Dates: start: 20071119, end: 20080115
  2. KEPPRA [Suspect]
     Indication: EPILEPSY
     Dates: start: 20070416, end: 20080116

REACTIONS (2)
  - NON-HODGKIN'S LYMPHOMA [None]
  - PANCYTOPENIA [None]
